FAERS Safety Report 8169982-9 (Version None)
Quarter: 2012Q1

REPORT INFORMATION
  Report Type: 
  Country: None (occurrence: None)
  Receive Date: 20120228
  Receipt Date: 20120224
  Transmission Date: 20120608
  Serious: No
  Sender: FDA-Public Use
  Company Number: US-BAYER-2012-018990

PATIENT
  Sex: Female

DRUGS (1)
  1. ALEVE (CAPLET) [Suspect]
     Indication: BACK DISORDER

REACTIONS (2)
  - BACK DISORDER [None]
  - MOBILITY DECREASED [None]
